FAERS Safety Report 4863241-5 (Version None)
Quarter: 2005Q4

REPORT INFORMATION
  Report Type: 
  Country: None (occurrence: None)
  Receive Date: 20051219
  Receipt Date: 20051206
  Transmission Date: 20060501
  Serious: Yes (Other)
  Sender: FDA-Public Use
  Company Number: 2005165324

PATIENT
  Sex: Male
  Weight: 108.8633 kg

DRUGS (5)
  1. VIAGRA [Suspect]
     Indication: ERECTILE DYSFUNCTION
     Dosage: (AS NECESSARY), ORAL
     Route: 048
  2. CIALIS [Suspect]
     Indication: ERECTILE DYSFUNCTION
  3. VICODIN ES [Concomitant]
  4. ALL OTHER THERAPEUTIC PRODUCTS [Concomitant]
  5. ANTIHISTAMINES           (ANTIHISTAMINES) [Concomitant]

REACTIONS (5)
  - BUNDLE BRANCH BLOCK RIGHT [None]
  - CHEST PAIN [None]
  - DRUG INEFFECTIVE [None]
  - FEELING ABNORMAL [None]
  - INCORRECT DOSE ADMINISTERED [None]
